FAERS Safety Report 6972479-2 (Version None)
Quarter: 2010Q3

REPORT INFORMATION
  Report Type: 
  Country: None (occurrence: None)
  Receive Date: 20100909
  Receipt Date: 20100830
  Transmission Date: 20110219
  Serious: Yes (Hospitalization, Other)
  Sender: FDA-Public Use
  Company Number: US-BAYER-201032218NA

PATIENT
  Age: 65 Year
  Sex: Female
  Weight: 62 kg

DRUGS (10)
  1. SORAFENIB [Suspect]
     Indication: COLORECTAL CANCER METASTATIC
     Dosage: TOTAL DAILY DOSE: 400 MG  UNIT DOSE: 200 MG
     Route: 048
     Dates: start: 20100527
  2. SORAFENIB [Suspect]
     Dosage: TOTAL DAILY DOSE: 400 MG  UNIT DOSE: 200 MG
     Route: 048
     Dates: start: 20100722, end: 20100814
  3. RDEA119 [Suspect]
     Indication: COLORECTAL CANCER METASTATIC
     Dosage: TOTAL DAILY DOSE: 100 MG
     Dates: start: 20100722, end: 20100814
  4. RDEA119 [Suspect]
     Dosage: TOTAL DAILY DOSE: 100 MG
     Dates: start: 20100527
  5. ALBUTEROL [Concomitant]
     Indication: UNEVALUABLE EVENT
     Dosage: 2 PUFFS/INHALER
     Dates: start: 20090501
  6. MUCINEX [Concomitant]
     Indication: UNEVALUABLE EVENT
     Dosage: 200 MG
     Dates: start: 20090501
  7. PROTONIX [Concomitant]
     Indication: ANTACID THERAPY
     Route: 048
     Dates: start: 20020101
  8. LOMOTIL [Concomitant]
     Indication: DIARRHOEA
     Dosage: 2.5 MG
     Route: 048
     Dates: start: 20100529
  9. FERROUS GEL [Concomitant]
     Indication: MINERAL SUPPLEMENTATION
     Dosage: TOTAL DAILY DOSE: 325 MG
     Route: 048
     Dates: start: 20100527
  10. IMODIUM [Concomitant]
     Indication: DIARRHOEA
     Dosage: TOTAL DAILY DOSE: 2 MG
     Route: 048
     Dates: start: 20100529

REACTIONS (5)
  - ANAEMIA [None]
  - DIARRHOEA [None]
  - DYSPNOEA [None]
  - FATIGUE [None]
  - HYPOKALAEMIA [None]
